FAERS Safety Report 8030218-0 (Version None)
Quarter: 2011Q4

REPORT INFORMATION
  Report Type: 
  Country: None (occurrence: None)
  Receive Date: 20111130
  Receipt Date: 20110518
  Transmission Date: 20120403
  Serious: Yes (Other)
  Sender: FDA-Public Use
  Company Number: US201007007854

PATIENT
  Sex: Female
  Weight: 121.5 kg

DRUGS (27)
  1. METOLAZONE [Concomitant]
  2. DIOVAN [Concomitant]
  3. TEKTURNA (ALISKIREN FUMARATE) [Concomitant]
  4. AMLODIPINE [Concomitant]
  5. TORSEMIDE [Concomitant]
  6. LIPITOR [Concomitant]
  7. COREG [Concomitant]
  8. SIMVASTATIN [Concomitant]
  9. ALDACTONE [Concomitant]
  10. ALPHAGAN [Concomitant]
  11. CLONIDINE [Concomitant]
  12. GLIPIZIDE [Concomitant]
  13. IRON (IRON) [Concomitant]
  14. TIMOLOL MALEATE [Concomitant]
  15. GLUCOSAMINE CHONDROITIN (CHONDROITIN SULFATE, GLUCOSAMINE) [Concomitant]
  16. ARANESP [Concomitant]
  17. LASIX [Concomitant]
  18. MULTIVITAMIN [Concomitant]
  19. HYDRALAZINE HCL [Concomitant]
  20. LUMIGAN [Concomitant]
  21. METFORMIN HCL [Concomitant]
  22. POTASSIUM CHLORIDE [Concomitant]
  23. BYETTA [Suspect]
     Dosage: 5 UG, BID, SUBCUTANEOUS ; 10 UG, BID
     Route: 058
     Dates: start: 20070118
  24. GLYBURIDE [Concomitant]
  25. ASPIRIN [Concomitant]
  26. SYNTHROID [Concomitant]
  27. ISORDIL [Concomitant]

REACTIONS (2)
  - RENAL FAILURE [None]
  - PANCREATITIS [None]
